FAERS Safety Report 7373940-1 (Version None)
Quarter: 2011Q1

REPORT INFORMATION
  Report Type: 
  Country: None (occurrence: None)
  Receive Date: 20110325
  Receipt Date: 20110322
  Transmission Date: 20110831
  Serious: No
  Sender: FDA-Public Use
  Company Number: US-PFIZER INC-2004120831

PATIENT
  Sex: Male
  Weight: 90.72 kg

DRUGS (3)
  1. PREDNISOLONE ACETATE [Concomitant]
     Indication: ILL-DEFINED DISORDER
     Route: 047
     Dates: start: 19840101
  2. ACULAR [Suspect]
     Indication: HYPERSENSITIVITY
     Route: 047
     Dates: end: 20041219
  3. XALATAN [Suspect]
     Dosage: 1 GTT EVERY NIGHT
     Route: 047

REACTIONS (4)
  - DRY EYE [None]
  - VITREOUS FLOATERS [None]
  - VISION BLURRED [None]
  - OCULAR HYPERAEMIA [None]
